FAERS Safety Report 18955185 (Version 7)
Quarter: 2022Q1

REPORT INFORMATION
  Report Type: Spontaneous
  Country: US (occurrence: US)
  Receive Date: 20210301
  Receipt Date: 20220120
  Transmission Date: 20220424
  Serious: Yes (Other)
  Sender: FDA-Public Use
  Company Number: US-BOEHRINGERINGELHEIM-2021-BI-085398

PATIENT
  Age: 63 Year
  Sex: Female
  Weight: 63.50 kg

DRUGS (18)
  1. ATROVENT HFA [Suspect]
     Active Substance: IPRATROPIUM BROMIDE
     Indication: Chronic obstructive pulmonary disease
     Dosage: 2 INHALATIONS 4 TIMES DAILY AND AS NEEDED, INHALATION AEROSOL
     Route: 055
     Dates: start: 2008
  2. ATROVENT HFA [Suspect]
     Active Substance: IPRATROPIUM BROMIDE
     Dosage: 17 MCG 2 INH Q4H PRN 6XD
     Route: 055
     Dates: start: 20201216
  3. ATROVENT HFA [Suspect]
     Active Substance: IPRATROPIUM BROMIDE
     Dosage: 12 INHALATIONS PER DAY OF ATROVENT HFA ON DAYS, INHALATION AEROSOL
     Route: 055
     Dates: start: 20210215, end: 20210217
  4. ATROVENT HFA [Suspect]
     Active Substance: IPRATROPIUM BROMIDE
     Dosage: INHALATION AEROSOL
     Route: 055
     Dates: start: 20210218
  5. POTASSIUM [Concomitant]
     Active Substance: POTASSIUM
     Indication: Product used for unknown indication
     Route: 048
     Dates: start: 20201216
  6. LASIX [Concomitant]
     Active Substance: FUROSEMIDE
     Indication: Product used for unknown indication
     Dosage: 20MG- 20T PO QOD PRN
     Route: 048
     Dates: start: 20201216
  7. ATENOLOL [Concomitant]
     Active Substance: ATENOLOL
     Indication: Product used for unknown indication
     Route: 048
     Dates: start: 20201216
  8. Diltiazem HCL Coated Beads (Catia XT) [Concomitant]
     Indication: Product used for unknown indication
     Dosage: 300 MG ORAL CAPSULE EXTENDED RELEASE 24 HOUR ?1C PO QD
     Route: 048
     Dates: start: 20201216
  9. ALTACE [Concomitant]
     Active Substance: RAMIPRIL
     Indication: Product used for unknown indication
     Route: 048
  10. ASPIRIN [Concomitant]
     Active Substance: ASPIRIN
     Indication: Product used for unknown indication
     Route: 048
     Dates: start: 20201216
  11. VITAMIN D3 [Concomitant]
     Active Substance: CHOLECALCIFEROL
     Indication: Product used for unknown indication
     Dosage: 2000 UNIT
     Route: 048
     Dates: start: 20201216
  12. Ferrous Sulfate 325 (65 Fe) [Concomitant]
     Indication: Product used for unknown indication
     Dosage: 1T PO M,W,FRI
     Route: 048
     Dates: start: 20201216
  13. OXYGEN [Concomitant]
     Active Substance: OXYGEN
     Indication: Product used for unknown indication
  14. VITAMIN E [Concomitant]
     Active Substance: .ALPHA.-TOCOPHEROL
     Indication: Product used for unknown indication
     Dosage: 4000 UNIT
     Route: 048
     Dates: start: 20201216
  15. WARFARIN SODIUM [Concomitant]
     Active Substance: WARFARIN SODIUM
     Indication: Product used for unknown indication
     Dosage: 1T PO QPM
     Route: 048
     Dates: start: 20201216
  16. multiple vitamins with minerals (Daily Multivitamin) [Concomitant]
     Indication: Product used for unknown indication
     Route: 048
     Dates: start: 20201216
  17. Multiple vitamins with minerals (PreserVision AREDS) [Concomitant]
     Indication: Product used for unknown indication
     Route: 048
     Dates: start: 20201216
  18. Albuterol Sulfate (Albuterol Sulfate HFA) 108 (90 Base) [Concomitant]
     Indication: Product used for unknown indication
     Dosage: 108 (90 BASE) MCG/ACT INHALATION AEROSOL QID PRN
     Dates: start: 20210311

REACTIONS (6)
  - Macular degeneration [Not Recovered/Not Resolved]
  - Cardiac failure congestive [Not Recovered/Not Resolved]
  - Blindness unilateral [Not Recovered/Not Resolved]
  - Dyspnoea [Recovered/Resolved]
  - Intentional product misuse [Recovered/Resolved]
  - Oxygen saturation increased [Recovered/Resolved]

NARRATIVE: CASE EVENT DATE: 20150101
